FAERS Safety Report 6372200-5 (Version None)
Quarter: 2009Q3

REPORT INFORMATION
  Report Type: 
  Country: None (occurrence: None)
  Receive Date: 20090924
  Receipt Date: 20090914
  Transmission Date: 20100115
  Serious: Yes (Hospitalization)
  Sender: FDA-Public Use
  Company Number: DE-BIOGENIDEC-2008BI030923

PATIENT
  Age: 27 Year
  Sex: Female

DRUGS (8)
  1. TYSABRI [Suspect]
     Indication: MULTIPLE SCLEROSIS
     Dosage: BASED ON ULTRASOUND.
     Route: 042
     Dates: start: 20070201, end: 20080822
  2. FERROSANOL [Concomitant]
  3. FEMIBION [Concomitant]
  4. MAGNESIOCARD [Concomitant]
     Dosage: CALCULATED FROM LAST MENSTRUAL PERIOD OF 02 AUGUST 2008
  5. CONTRACEPTIVE [Concomitant]
  6. MULTI-VITAMINS [Concomitant]
  7. NSAIDS [Concomitant]
  8. ANTIBIOTIC [Concomitant]

REACTIONS (2)
  - HYPEREMESIS GRAVIDARUM [None]
  - PREGNANCY [None]
